FAERS Safety Report 20497222 (Version 1)
Quarter: 2022Q1

REPORT INFORMATION
  Report Type: Spontaneous
  Country: US (occurrence: US)
  Receive Date: 20220221
  Receipt Date: 20220221
  Transmission Date: 20220423
  Serious: No
  Sender: FDA-Public Use
  Company Number: US-PFIZER INC-2021655125

PATIENT
  Age: 58 Year
  Sex: Female
  Weight: 69.9 kg

DRUGS (1)
  1. IBRANCE [Suspect]
     Active Substance: PALBOCICLIB
     Indication: Breast cancer female
     Dosage: 125 MG, CYCLIC (TAKES ON DAYS 1-21 AND IS OF OFF 7 DAYS )
     Dates: start: 20210510

REACTIONS (2)
  - Drug ineffective [Unknown]
  - Abdominal pain lower [Unknown]
